FAERS Safety Report 5557883-1 (Version None)
Quarter: 2007Q4

REPORT INFORMATION
  Report Type: 
  Country: None (occurrence: None)
  Receive Date: 20071214
  Receipt Date: 20071206
  Transmission Date: 20080405
  Serious: No
  Sender: FDA-Public Use
  Company Number: US-BAXTER-2007BH008352

PATIENT
  Age: 30 Year
  Sex: Female
  Weight: 72 kg

DRUGS (2)
  1. GAMMAGARD LIQUID [Suspect]
     Indication: ANTIPHOSPHOLIPID SYNDROME
     Route: 042
     Dates: start: 20071005, end: 20071006
  2. GAMMAGARD LIQUID [Suspect]
     Indication: INTENTIONAL DRUG MISUSE
     Route: 042
     Dates: start: 20071005, end: 20071006

REACTIONS (1)
  - MENINGITIS ASEPTIC [None]
